FAERS Safety Report 6218310-4 (Version None)
Quarter: 2009Q2

REPORT INFORMATION
  Report Type: 
  Country: None (occurrence: None)
  Receive Date: 20090608
  Receipt Date: 20090528
  Transmission Date: 20091009
  Serious: Yes (Hospitalization)
  Sender: FDA-Public Use
  Company Number: FR-JNJFOC-20090600736

PATIENT
  Age: 75 Year
  Sex: Male

DRUGS (3)
  1. CAELYX [Suspect]
     Dosage: CYCLE 3
     Route: 042
  2. CAELYX [Suspect]
     Dosage: CYCLE 2
     Route: 042
  3. CAELYX [Suspect]
     Indication: MYCOSIS FUNGOIDES
     Dosage: CYCLE 1
     Route: 042

REACTIONS (4)
  - INFLAMMATION [None]
  - INFUSION RELATED REACTION [None]
  - LYMPHOPENIA [None]
  - PALMAR-PLANTAR ERYTHRODYSAESTHESIA SYNDROME [None]
